FAERS Safety Report 7406202-4 (Version None)
Quarter: 2011Q2

REPORT INFORMATION
  Report Type: 
  Country: None (occurrence: None)
  Receive Date: 20110405
  Receipt Date: 20110405
  Transmission Date: 20111010
  Serious: No
  Sender: FDA-Public Use
  Company Number: None

PATIENT
  Age: 69 Year
  Sex: Female

DRUGS (2)
  1. PRAVASTATIN [Suspect]
  2. LIPITOR [Suspect]

REACTIONS (2)
  - MYOPATHY [None]
  - HEADACHE [None]
